FAERS Safety Report 24401336 (Version 1)
Quarter: 2024Q4

REPORT INFORMATION
  Report Type: Spontaneous
  Country: FR (occurrence: FR)
  Receive Date: 20241007
  Receipt Date: 20241007
  Transmission Date: 20250115
  Serious: Yes (Hospitalization)
  Sender: JOHNSON AND JOHNSON
  Company Number: None

PATIENT
  Age: 89 Year
  Sex: Female
  Weight: 52.6 kg

DRUGS (6)
  1. RISPERDAL [Suspect]
     Active Substance: RISPERIDONE
     Indication: Product administration error
     Route: 048
     Dates: start: 20240918, end: 20240918
  2. GABAPENTIN [Suspect]
     Active Substance: GABAPENTIN
     Indication: Product administration error
     Route: 048
     Dates: start: 20240918, end: 20240918
  3. NICARDIPINE HYDROCHLORIDE [Suspect]
     Active Substance: NICARDIPINE HYDROCHLORIDE
     Indication: Product administration error
     Route: 048
     Dates: start: 20240918, end: 20240918
  4. OXAZEPAM [Suspect]
     Active Substance: OXAZEPAM
     Indication: Product administration error
     Route: 048
     Dates: start: 20240918, end: 20240918
  5. MIRTAZAPINE [Suspect]
     Active Substance: MIRTAZAPINE
     Indication: Product administration error
     Route: 048
     Dates: start: 20240918, end: 20240918
  6. FERROUS SULFATE [Suspect]
     Active Substance: FERROUS SULFATE
     Indication: Product administration error
     Route: 048
     Dates: start: 20240918, end: 20240918

REACTIONS (1)
  - Product administration error [Recovered/Resolved]

NARRATIVE: CASE EVENT DATE: 20240918
